FAERS Safety Report 22634755 (Version 1)
Quarter: 2023Q2

REPORT INFORMATION
  Report Type: Spontaneous
  Country: GB (occurrence: GB)
  Receive Date: 20230623
  Receipt Date: 20230623
  Transmission Date: 20230721
  Serious: Yes (Hospitalization, Other)
  Sender: FDA-Public Use
  Company Number: None

PATIENT
  Age: 75 Year
  Sex: Female
  Weight: 64 kg

DRUGS (2)
  1. PAROXETINE [Suspect]
     Active Substance: PAROXETINE
     Indication: Depression
     Dosage: 20 MG, 2 TIMES PER DAY
     Route: 048
     Dates: start: 198007
  2. PAROXETINE [Suspect]
     Active Substance: PAROXETINE
     Indication: Anxiety

REACTIONS (2)
  - Syncope [Recovered/Resolved]
  - Food interaction [Unknown]

NARRATIVE: CASE EVENT DATE: 20180401
